FAERS Safety Report 7474850-1 (Version None)
Quarter: 2011Q2

REPORT INFORMATION
  Report Type: 
  Country: None (occurrence: None)
  Receive Date: 20110504
  Receipt Date: 20110426
  Transmission Date: 20111010
  Serious: Yes (Other)
  Sender: FDA-Public Use
  Company Number: LTI2011A00081

PATIENT
  Age: 64 Year
  Sex: Male

DRUGS (5)
  1. APROVEL (IRBESARTAN) [Concomitant]
  2. NOVONORM (REPAGLINIDE) [Concomitant]
  3. BISOPROLOL FUMARATE [Concomitant]
  4. ACTOS [Suspect]
     Indication: TYPE 2 DIABETES MELLITUS
     Dosage: 30 MG (30 MG, 1 IN 1 D), ORAL
     Route: 048
     Dates: start: 20030101
  5. KARDEGIC (ACETYLSALICYLATE LYSINE) [Concomitant]

REACTIONS (2)
  - MYOCARDIAL INFARCTION [None]
  - OEDEMA PERIPHERAL [None]
